FAERS Safety Report 5098810-3 (Version None)
Quarter: 2006Q3

REPORT INFORMATION
  Report Type: 
  Country: None (occurrence: None)
  Receive Date: 20060905
  Receipt Date: 20060825
  Transmission Date: 20061208
  Serious: Yes (Hospitalization)
  Sender: FDA-Public Use
  Company Number: 235575K06USA

PATIENT
  Age: 56 Year
  Sex: Female

DRUGS (3)
  1. REBIF [Suspect]
     Indication: MULTIPLE SCLEROSIS
     Dosage: 22 MCG, 3 IN 1 WEEKS, NOT REPORTED, 44MCG, 3 IN 1 WEEKS, NOT REPORTED
     Dates: start: 20060101
  2. PREDNISON (PREDNISONE /00044701/) [Suspect]
     Dosage: NOT REPORTED;
     Dates: start: 20060101
  3. IMMUNOGLOBULINS [Concomitant]

REACTIONS (6)
  - ABASIA [None]
  - CENTRAL LINE INFECTION [None]
  - HAEMORRHAGE [None]
  - OEDEMA PERIPHERAL [None]
  - SECRETION DISCHARGE [None]
  - SKIN DISCOLOURATION [None]
